FAERS Safety Report 6988601-8 (Version None)
Quarter: 2010Q3

REPORT INFORMATION
  Report Type: 
  Country: None (occurrence: None)
  Receive Date: 20100916
  Receipt Date: 20100914
  Transmission Date: 20110219
  Serious: Yes (Other)
  Sender: FDA-Public Use
  Company Number: DE-ROXANE LABORATORIES, INC.-2010-RO-01220RO

PATIENT
  Age: 59 Year
  Sex: Male

DRUGS (3)
  1. CYCLOPHOSPHAMIDE [Suspect]
     Indication: ALLERGIC GRANULOMATOUS ANGIITIS
     Route: 042
  2. AZATHIOPRINE [Suspect]
     Indication: ALLERGIC GRANULOMATOUS ANGIITIS
  3. PREDNISONE [Suspect]
     Indication: ALLERGIC GRANULOMATOUS ANGIITIS

REACTIONS (1)
  - DRUG HYPERSENSITIVITY [None]
